FAERS Safety Report 9450594 (Version 1)
Quarter: 2013Q3

REPORT INFORMATION
  Report Type: Spontaneous
  Country: US (occurrence: US)
  Receive Date: 20130809
  Receipt Date: 20130809
  Transmission Date: 20140515
  Serious: Yes (Hospitalization, Other)
  Sender: FDA-Public Use
  Company Number: US-BAYER-2013-095701

PATIENT
  Age: 32 Year
  Sex: Female
  Weight: 83.9 kg

DRUGS (6)
  1. OCELLA [Suspect]
     Indication: CONTRACEPTION
  2. FLAGYL [Concomitant]
     Dosage: 500 MG, UNK
     Dates: start: 20100502
  3. CIPRO [Concomitant]
     Dosage: 500 MG, UNK
     Dates: start: 20100502
  4. ACIPHEX [Concomitant]
     Dosage: 20 MG, UNK
     Dates: start: 20100502
  5. ZYRTEC [Concomitant]
     Dosage: 10 MG, UNK
     Dates: start: 20100502
  6. SINGULAIR [Concomitant]
     Dosage: 10 MG, UNK
     Dates: start: 20100502

REACTIONS (3)
  - Cholelithiasis [None]
  - Deep vein thrombosis [Recovering/Resolving]
  - Pulmonary embolism [Recovered/Resolved]
